FAERS Safety Report 16904320 (Version 1)
Quarter: 2019Q4

REPORT INFORMATION
  Report Type: Spontaneous
  Country: US (occurrence: US)
  Receive Date: 20190819
  Receipt Date: 20190819
  Transmission Date: 20200122
  Serious: No
  Sender: FDA-Public Use
  Company Number: None

PATIENT
  Age: 50 Year
  Sex: Female

DRUGS (1)
  1. ORENCIA [Suspect]
     Active Substance: ABATACEPT
     Dates: start: 201804

REACTIONS (3)
  - Injection site extravasation [None]
  - Drug dose omission by device [None]
  - Accidental exposure to product [None]

NARRATIVE: CASE EVENT DATE: 20190819
